FAERS Safety Report 18742216 (Version 1)
Quarter: 2021Q1

REPORT INFORMATION
  Report Type: Spontaneous
  Country: DE (occurrence: DE)
  Receive Date: 20210114
  Receipt Date: 20210114
  Transmission Date: 20210419
  Serious: Yes (Hospitalization)
  Sender: FDA-Public Use
  Company Number: DE-BAUSCH-BL-2021-000091

PATIENT
  Age: 53 Year
  Sex: Female

DRUGS (16)
  1. TRIAMCINOLONE [Suspect]
     Active Substance: TRIAMCINOLONE
     Dosage: ON 21/JAN (UNSPECIFIED YEAR)
     Route: 037
  2. BISOPROLOL [Concomitant]
     Active Substance: BISOPROLOL
     Indication: PRODUCT USED FOR UNKNOWN INDICATION
     Dosage: 1X5 MG
  3. AMLODIPINE [Concomitant]
     Active Substance: AMLODIPINE BESYLATE
     Indication: PRODUCT USED FOR UNKNOWN INDICATION
     Dosage: 1X5 MG
  4. LEVOTHYROXINE. [Concomitant]
     Active Substance: LEVOTHYROXINE
     Indication: PRODUCT USED FOR UNKNOWN INDICATION
     Dosage: 1X125 UG
  5. NALOXONE/OXYCODONE [Suspect]
     Active Substance: NALOXONE HYDROCHLORIDE\OXYCODONE HYDROCHLORIDE
     Indication: BACK PAIN
     Dosage: 2X20 MG
     Route: 048
  6. VALPROATE [Concomitant]
     Active Substance: VALPROIC ACID
     Indication: PRODUCT USED FOR UNKNOWN INDICATION
     Dosage: 2X300 MG
  7. TRIAMCINOLONE [Suspect]
     Active Substance: TRIAMCINOLONE
     Indication: BACK PAIN
     Dosage: ON 15/JAN AND 17/JAN (UNSPECIFIED YEAR)
     Route: 065
  8. PRILOCAINE [Suspect]
     Active Substance: PRILOCAINE
     Indication: BACK PAIN
     Dosage: ON 15/JAN AND 17/JAN (UNSPECIFIED YEAR)
     Route: 065
  9. BUPIVACAINE. [Suspect]
     Active Substance: BUPIVACAINE
     Dosage: ON 15/JAN AND 17/JAN (UNSPECIFIED YEAR)
     Route: 065
  10. BUPIVACAINE. [Suspect]
     Active Substance: BUPIVACAINE
     Indication: BACK PAIN
     Dosage: ON 14/JAN AND 18/JAN (UNSPECIFIED YEAR)
     Route: 065
  11. BUPIVACAINE. [Suspect]
     Active Substance: BUPIVACAINE
     Dosage: ON 21/JAN (UNSPECIFIED YEAR)
     Route: 037
  12. DEXAMETHASONE. [Suspect]
     Active Substance: DEXAMETHASONE
     Indication: BACK PAIN
     Route: 065
  13. CELECOXIB. [Suspect]
     Active Substance: CELECOXIB
     Indication: BACK PAIN
     Dosage: 2X100 MG
     Route: 048
  14. TORASEMIDE [Concomitant]
     Active Substance: TORSEMIDE
     Indication: PRODUCT USED FOR UNKNOWN INDICATION
     Dosage: 1X5 MG
  15. METAMIZOLE [Suspect]
     Active Substance: METAMIZOLE
     Indication: BACK PAIN
     Dosage: 4X1 G
     Route: 042
  16. CANDESARTAN. [Concomitant]
     Active Substance: CANDESARTAN
     Indication: PRODUCT USED FOR UNKNOWN INDICATION
     Dosage: 1X16 MG

REACTIONS (1)
  - Necrotising fasciitis [Recovering/Resolving]
